FAERS Safety Report 10545273 (Version 1)
Quarter: 2014Q4

REPORT INFORMATION
  Report Type: Spontaneous
  Country: CL (occurrence: CL)
  Receive Date: 20141027
  Receipt Date: 20141027
  Transmission Date: 20150529
  Serious: Yes (Hospitalization, Other)
  Sender: FDA-Public Use
  Company Number: CL-ASTRAZENECA-2014SE78827

PATIENT
  Age: 29 Year
  Sex: Female
  Weight: 75 kg

DRUGS (7)
  1. ROPIVACAINE [Suspect]
     Active Substance: ROPIVACAINE
     Indication: SPINAL ANAESTHESIA
     Route: 037
  2. LACTATED RINGERS [Concomitant]
     Active Substance: CALCIUM CHLORIDE\POTASSIUM CHLORIDE\SODIUM CHLORIDE\SODIUM LACTATE
     Route: 042
  3. SUFENTANIL [Concomitant]
     Active Substance: SUFENTANIL
     Route: 037
  4. SALINE [Concomitant]
     Active Substance: SODIUM CHLORIDE
     Dosage: 50 ML SALINE CONTAINING 50 MG OF ROPIVACAINE AT A CONTINUOUS INFUSION RATE OF 2 ML/H.
     Route: 037
  5. ROPIVACAINE [Suspect]
     Active Substance: ROPIVACAINE
     Indication: SPINAL ANAESTHESIA
     Route: 037
  6. ROPIVACAINE [Suspect]
     Active Substance: ROPIVACAINE
     Indication: SPINAL ANAESTHESIA
     Dosage: 50 ML SALINE CONTAINING 50 MG OF ROPIVACAINE AT A CONTINUOUS INFUSION RATE OF 2 ML/H
     Route: 037
  7. OXYGEN. [Concomitant]
     Active Substance: OXYGEN
     Dosage: 4L/MIN
     Route: 055

REACTIONS (12)
  - Pulmonary function test decreased [Recovered/Resolved]
  - Drug administration error [Recovered/Resolved]
  - Hypoaesthesia [Recovered/Resolved]
  - Lethargy [Recovered/Resolved]
  - Blood pressure decreased [Recovered/Resolved]
  - Nausea [Recovered/Resolved]
  - Asthenia [Recovered/Resolved]
  - Apnoea [Recovered/Resolved]
  - Dyspnoea [Recovered/Resolved]
  - Spinal anaesthesia [Recovered/Resolved]
  - Somnolence [Recovered/Resolved]
  - Chills [Recovered/Resolved]
